FAERS Safety Report 6019899-0 (Version None)
Quarter: 2008Q4

REPORT INFORMATION
  Report Type: 
  Country: None (occurrence: None)
  Receive Date: 20081222
  Receipt Date: 20081212
  Transmission Date: 20090506
  Serious: Yes (Other)
  Sender: FDA-Public Use
  Company Number: 038261

PATIENT
  Age: 18 Year
  Sex: Female
  Weight: 57.6 kg

DRUGS (3)
  1. PLAN B [Suspect]
     Indication: CONTRACEPTION
     Dosage: 1 TABLET, Q12HR, ORAL
     Route: 048
     Dates: start: 20081125, end: 20081125
  2. PLAN B [Suspect]
     Indication: CONTRACEPTION
     Dosage: 1 TABLET, Q12HR, ORAL
     Route: 048
     Dates: start: 20081209, end: 20081210
  3. HEADACHE MEDICATION [Concomitant]

REACTIONS (8)
  - ABDOMINAL PAIN [None]
  - ABORTION SPONTANEOUS [None]
  - ASTHENIA [None]
  - DIZZINESS [None]
  - DRUG EXPOSURE DURING PREGNANCY [None]
  - FATIGUE [None]
  - UNINTENDED PREGNANCY [None]
  - UTERINE HAEMORRHAGE [None]
